FAERS Safety Report 6190771-9 (Version None)
Quarter: 2009Q2

REPORT INFORMATION
  Report Type: 
  Country: None (occurrence: None)
  Receive Date: 20090514
  Receipt Date: 20090508
  Transmission Date: 20091009
  Serious: Yes (Hospitalization)
  Sender: FDA-Public Use
  Company Number: US-ELI_LILLY_AND_COMPANY-US200905001919

PATIENT
  Sex: Male

DRUGS (2)
  1. BYETTA [Suspect]
     Dosage: UNK, UNKNOWN
     Dates: end: 20090101
  2. BYETTA [Suspect]
     Dosage: UNK, UNKNOWN
     Dates: start: 20090101, end: 20090101

REACTIONS (1)
  - PERICARDIAL EFFUSION [None]
